FAERS Safety Report 14669896 (Version 1)
Quarter: 2018Q1

REPORT INFORMATION
  Report Type: Spontaneous
  Country: GB (occurrence: GB)
  Receive Date: 20180322
  Receipt Date: 20180322
  Transmission Date: 20180509
  Serious: Yes (Other)
  Sender: FDA-Public Use
  Company Number: GB-BAUSCH-BL-2018-007298

PATIENT
  Age: 78 Year
  Sex: Male

DRUGS (1)
  1. TROPICAMIDE. [Suspect]
     Active Substance: TROPICAMIDE
     Indication: PRODUCT USED FOR UNKNOWN INDICATION
     Route: 065
     Dates: start: 20171212

REACTIONS (4)
  - Documented hypersensitivity to administered product [Unknown]
  - Hypersensitivity [Unknown]
  - Conjunctival oedema [Unknown]
  - Erythema of eyelid [Unknown]
